FAERS Safety Report 7962694-3 (Version None)
Quarter: 2011Q4

REPORT INFORMATION
  Report Type: 
  Country: None (occurrence: None)
  Receive Date: 20111207
  Receipt Date: 20111130
  Transmission Date: 20120403
  Serious: Yes (Other)
  Sender: FDA-Public Use
  Company Number: JP-JNJFOC-20111201118

PATIENT
  Sex: Male
  Weight: 72 kg

DRUGS (20)
  1. STELARA [Suspect]
     Route: 058
     Dates: start: 20111118, end: 20111118
  2. BONALFA [Concomitant]
     Route: 061
  3. LEVOTHYROXINE SODIUM [Concomitant]
     Route: 048
  4. ISONIAZID [Suspect]
     Route: 048
     Dates: start: 20110926
  5. LIDOMEX [Concomitant]
     Route: 061
  6. AZUNOL [Concomitant]
     Route: 061
  7. OLMESARTAN MEDOXOMIL [Concomitant]
     Route: 048
  8. SAHNE [Concomitant]
     Route: 061
  9. TIGASON [Concomitant]
     Route: 048
     Dates: end: 20110729
  10. TOPSYM [Concomitant]
     Route: 061
  11. EURAX [Concomitant]
     Route: 061
  12. STELARA [Suspect]
     Indication: PSORIASIS
     Route: 058
     Dates: start: 20110420, end: 20110420
  13. STELARA [Suspect]
     Route: 058
     Dates: start: 20110520, end: 20110520
  14. STELARA [Suspect]
     Route: 058
     Dates: start: 20110822, end: 20110822
  15. ISONIAZID [Suspect]
     Indication: PROPHYLAXIS
     Route: 048
     Dates: end: 20110729
  16. NORVASC [Concomitant]
  17. LIPITOR [Concomitant]
  18. OXAROL [Concomitant]
     Route: 061
  19. OLOPATADINE HCL [Concomitant]
     Route: 048
     Dates: end: 20110821
  20. CORTRIL [Concomitant]
     Route: 048

REACTIONS (3)
  - HEPATIC FUNCTION ABNORMAL [None]
  - TENDON INJURY [None]
  - GASTRITIS [None]
